FAERS Safety Report 6715649-0 (Version None)
Quarter: 2010Q2

REPORT INFORMATION
  Report Type: 
  Country: None (occurrence: None)
  Receive Date: 20100507
  Receipt Date: 20090918
  Transmission Date: 20101027
  Serious: No
  Sender: FDA-Public Use
  Company Number: A0806445A

PATIENT
  Age: 5 Day
  Sex: Female

DRUGS (3)
  1. RETROVIR [Suspect]
     Indication: HIV INFECTION
     Dosage: .46ML SINGLE DOSE
     Route: 042
     Dates: start: 20090902, end: 20090902
  2. DEXTROSE + NORMAL SALINE + KCL [Concomitant]
  3. HEPARIN [Concomitant]

REACTIONS (1)
  - INCORRECT ROUTE OF DRUG ADMINISTRATION [None]
